FAERS Safety Report 13024081 (Version 2)
Quarter: 2016Q4

REPORT INFORMATION
  Report Type: Spontaneous
  Country: US (occurrence: US)
  Receive Date: 20161213
  Receipt Date: 20161226
  Transmission Date: 20170207
  Serious: Yes (Hospitalization)
  Sender: FDA-Public Use
  Company Number: PHEH2016US031800

PATIENT
  Age: 61 Year
  Sex: Female

DRUGS (13)
  1. PROGRAF [Suspect]
     Active Substance: TACROLIMUS\TACROLIMUS ANHYDROUS
     Indication: PRODUCT USED FOR UNKNOWN INDICATION
     Dosage: UNK
     Route: 065
  2. AMLODIPINE [Concomitant]
     Active Substance: AMLODIPINE BESYLATE
     Indication: PRODUCT USED FOR UNKNOWN INDICATION
     Route: 065
  3. CELLCEPT [Concomitant]
     Active Substance: MYCOPHENOLATE MOFETIL\MYCOPHENOLATE MOFETIL HYDROCHLORIDE
     Indication: PRODUCT USED FOR UNKNOWN INDICATION
     Route: 065
  4. ZORTRESS [Suspect]
     Active Substance: EVEROLIMUS
     Indication: PROPHYLAXIS AGAINST TRANSPLANT REJECTION
  5. PEPCID [Concomitant]
     Active Substance: FAMOTIDINE
     Indication: PRODUCT USED FOR UNKNOWN INDICATION
     Dosage: UNK (30 DAY SUPPLY)
     Route: 065
     Dates: start: 20160919
  6. PREDNISONE. [Concomitant]
     Active Substance: PREDNISONE
     Indication: BIOPSY HEART
     Dosage: 100 MG, BID
     Route: 065
  7. CARDURA [Concomitant]
     Active Substance: DOXAZOSIN MESYLATE
     Indication: PRODUCT USED FOR UNKNOWN INDICATION
     Route: 065
  8. ACYCLOVIR. [Concomitant]
     Active Substance: ACYCLOVIR
     Indication: PRODUCT USED FOR UNKNOWN INDICATION
     Route: 065
  9. MAGNESIUM [Concomitant]
     Active Substance: MAGNESIUM
     Indication: PRODUCT USED FOR UNKNOWN INDICATION
     Route: 065
  10. PRAVACHOL [Concomitant]
     Active Substance: PRAVASTATIN SODIUM
     Indication: PRODUCT USED FOR UNKNOWN INDICATION
     Route: 065
  11. TACROLIMUS. [Concomitant]
     Active Substance: TACROLIMUS
     Indication: PRODUCT USED FOR UNKNOWN INDICATION
     Route: 065
  12. ZORTRESS [Suspect]
     Active Substance: EVEROLIMUS
     Indication: PROPHYLAXIS AGAINST TRANSPLANT REJECTION
     Dosage: 0.5 MG, BID (6 TABLETS)
     Route: 048
     Dates: start: 20160919
  13. NYSTATIN. [Concomitant]
     Active Substance: NYSTATIN
     Indication: CANDIDA INFECTION
     Route: 065

REACTIONS (28)
  - Hypomagnesaemia [Unknown]
  - Hypertension [Unknown]
  - Peripheral swelling [Unknown]
  - Renal disorder [Unknown]
  - Frequent bowel movements [Unknown]
  - Cardiomyopathy [Unknown]
  - Cardiac failure congestive [Unknown]
  - Hiatus hernia [Unknown]
  - Diarrhoea [Recovering/Resolving]
  - Nausea [Unknown]
  - Oedema peripheral [Recovering/Resolving]
  - Blood disorder [Unknown]
  - Proteinuria [Recovering/Resolving]
  - Anaemia [Unknown]
  - Abdominal pain [Unknown]
  - Vomiting [Unknown]
  - Parainfluenzae virus infection [Unknown]
  - Chronic kidney disease [Unknown]
  - Skin ulcer [Unknown]
  - Acute kidney injury [None]
  - Oedema [Recovering/Resolving]
  - Joint swelling [Unknown]
  - Acute respiratory failure [Unknown]
  - Clostridium difficile colitis [Unknown]
  - Pancytopenia [Unknown]
  - Respiratory failure [Unknown]
  - Dehydration [Unknown]
  - Dyspnoea [Unknown]

NARRATIVE: CASE EVENT DATE: 20161121
